FAERS Safety Report 19020631 (Version 1)
Quarter: 2021Q1

REPORT INFORMATION
  Report Type: Spontaneous
  Country: RS (occurrence: RS)
  Receive Date: 20210317
  Receipt Date: 20210317
  Transmission Date: 20210420
  Serious: Yes (Death, Other)
  Sender: FDA-Public Use
  Company Number: RS-PFIZER INC-2021252132

PATIENT
  Age: 53 Year
  Sex: Female

DRUGS (5)
  1. LINEZOLID. [Concomitant]
     Active Substance: LINEZOLID
     Dosage: UNK
     Dates: start: 20200901
  2. ECALTA [Suspect]
     Active Substance: ANIDULAFUNGIN
     Indication: EVIDENCE BASED TREATMENT
     Dosage: UNK
     Dates: start: 20200831
  3. MERONEM [Concomitant]
     Active Substance: MEROPENEM
     Dosage: UNK
     Dates: start: 20200901
  4. TAZOCIN [Concomitant]
     Active Substance: PIPERACILLIN SODIUM\TAZOBACTAM SODIUM
     Dosage: UNK
     Dates: start: 20200830
  5. TYGACIL [Concomitant]
     Active Substance: TIGECYCLINE
     Dosage: UNK
     Dates: start: 20200830

REACTIONS (4)
  - Hepatitis acute [Unknown]
  - Acute kidney injury [Fatal]
  - Multiple organ dysfunction syndrome [Fatal]
  - Acute hepatic failure [Fatal]
